FAERS Safety Report 24869509 (Version 1)
Quarter: 2025Q1

REPORT INFORMATION
  Report Type: Spontaneous
  Country: US (occurrence: US)
  Receive Date: 20250121
  Receipt Date: 20250121
  Transmission Date: 20250409
  Serious: Yes (Death, Hospitalization, Other)
  Sender: PFIZER
  Company Number: US-PFIZER INC-202500012959

PATIENT
  Age: 93 Year
  Sex: Male

DRUGS (16)
  1. POTASSIUM CHLORIDE [Suspect]
     Active Substance: POTASSIUM CHLORIDE
     Route: 051
  2. POTASSIUM CHLORIDE [Suspect]
     Active Substance: POTASSIUM CHLORIDE
     Route: 048
  3. DIGOXIN [Suspect]
     Active Substance: DIGOXIN
     Route: 051
  4. DIGOXIN [Suspect]
     Active Substance: DIGOXIN
     Route: 048
  5. CARVEDILOL [Suspect]
     Active Substance: CARVEDILOL
     Route: 051
  6. CARVEDILOL [Suspect]
     Active Substance: CARVEDILOL
     Route: 048
  7. ATORVASTATIN [Suspect]
     Active Substance: ATORVASTATIN
     Route: 051
  8. ATORVASTATIN [Suspect]
     Active Substance: ATORVASTATIN
     Route: 048
  9. CITALOPRAM [Suspect]
     Active Substance: CITALOPRAM
     Route: 051
  10. CITALOPRAM [Suspect]
     Active Substance: CITALOPRAM
     Route: 048
  11. TAMSULOSIN [Suspect]
     Active Substance: TAMSULOSIN
     Route: 051
  12. TAMSULOSIN [Suspect]
     Active Substance: TAMSULOSIN
     Route: 048
  13. SACUBITRIL\VALSARTAN [Suspect]
     Active Substance: SACUBITRIL\VALSARTAN
     Route: 051
  14. SACUBITRIL\VALSARTAN [Suspect]
     Active Substance: SACUBITRIL\VALSARTAN
     Route: 048
  15. INSULIN NOS [Suspect]
     Active Substance: INSULIN NOS
     Route: 051
  16. INSULIN NOS [Suspect]
     Active Substance: INSULIN NOS
     Route: 048

REACTIONS (1)
  - Completed suicide [Fatal]

NARRATIVE: CASE EVENT DATE: 20230101
